FAERS Safety Report 17577293 (Version 1)
Quarter: 2020Q1

REPORT INFORMATION
  Report Type: Spontaneous
  Country: US (occurrence: US)
  Receive Date: 20200319
  Receipt Date: 20200319
  Transmission Date: 20200409
  Serious: No
  Sender: FDA-Public Use
  Company Number: None

PATIENT
  Age: 44 Year
  Sex: Female

DRUGS (1)
  1. NEORAL [Suspect]
     Active Substance: CYCLOSPORINE
     Indication: RENAL TRANSPLANT
     Dosage: ?          OTHER DOSE:3X25MG;?
     Route: 048
     Dates: start: 201908

REACTIONS (3)
  - Manufacturing product storage issue [None]
  - Product storage error [None]
  - Manufacturing product shipping issue [None]

NARRATIVE: CASE EVENT DATE: 20200319
